FAERS Safety Report 11584307 (Version 2)
Quarter: 2015Q4

REPORT INFORMATION
  Report Type: Report from Study
  Country: GB (occurrence: GB)
  Receive Date: 20151001
  Receipt Date: 20151106
  Transmission Date: 20160304
  Serious: Yes (Hospitalization)
  Sender: FDA-Public Use
  Company Number: GB-BAYER-2015-410158

PATIENT
  Age: 65 Year
  Sex: Male
  Weight: 85.8 kg

DRUGS (13)
  1. SORAFENIB (RAF KINASE INHIBITOR) [Suspect]
     Active Substance: SORAFENIB
     Indication: HEPATOCELLULAR CARCINOMA
     Dosage: DAILY DOSE 800 MG
     Route: 048
     Dates: start: 20150809, end: 20150822
  2. CODEINE PHOSPHATE [Concomitant]
     Active Substance: CODEINE PHOSPHATE
     Indication: PAIN
     Dosage: DAILY DOSE 120 MG
     Route: 048
     Dates: start: 201504
  3. CORSODYL [Concomitant]
     Active Substance: CHLORHEXIDINE GLUCONATE
     Indication: MUCOSAL INFLAMMATION
     Dosage: DAILY DOSE 0.2 %
     Route: 048
     Dates: start: 20150814
  4. BENDROFLUMETHIAZIDE [Concomitant]
     Active Substance: BENDROFLUMETHIAZIDE
     Indication: HYPERTENSION
     Dosage: DAILY DOSE 2.5 MG
     Route: 048
     Dates: start: 20150819
  5. SORAFENIB (RAF KINASE INHIBITOR) [Suspect]
     Active Substance: SORAFENIB
     Indication: HEPATOCELLULAR CARCINOMA
     Dosage: 400 MG, UNK
     Route: 048
     Dates: start: 20150915
  6. GADOXETIC ACID DISODIUM [Suspect]
     Active Substance: GADOXETATE DISODIUM
     Indication: HEPATOCELLULAR CARCINOMA
     Dosage: DAILY DOSE 5 ML
     Route: 042
     Dates: start: 20150610, end: 20150618
  7. YTTRIUM (90 Y) [Suspect]
     Active Substance: YTTRIUM Y-90
     Indication: HEPATOCELLULAR CARCINOMA
     Dosage: DAILY DOSE 1.86 GBQ
     Route: 013
     Dates: start: 20150806
  8. LANSOPRAZOLE. [Concomitant]
     Active Substance: LANSOPRAZOLE
     Indication: PROPHYLAXIS
     Dosage: DAILY DOSE 30 MG
     Route: 048
     Dates: start: 20150813
  9. METFORMIN [Concomitant]
     Active Substance: METFORMIN HYDROCHLORIDE
     Indication: DIABETES MELLITUS
     Dosage: DAILY DOSE 500 MG
     Route: 048
     Dates: start: 20150813
  10. DIFFLAM [Concomitant]
     Active Substance: BENZYDAMINE HYDROCHLORIDE
     Indication: MUCOSAL INFLAMMATION
     Dosage: 0.15% / 60 ML
     Route: 048
     Dates: start: 20150818
  11. GADOXETIC ACID DISODIUM [Suspect]
     Active Substance: GADOXETATE DISODIUM
     Indication: HEPATOCELLULAR CARCINOMA
     Dosage: DAILY DOSE 5 ML
     Route: 042
     Dates: start: 20150618
  12. YTTRIUM (90 Y) [Suspect]
     Active Substance: YTTRIUM Y-90
     Indication: HEPATOCELLULAR CARCINOMA
     Dosage: DAILY DOSE 1.86 GBQ
     Route: 013
     Dates: start: 20150708, end: 20150806
  13. SENNA [Concomitant]
     Active Substance: SENNA LEAF\SENNOSIDES\SENNOSIDES A AND B
     Indication: CONSTIPATION
     Dosage: DAILY DOSE 2 DF
     Route: 048
     Dates: start: 20150705

REACTIONS (7)
  - Mucosal inflammation [Not Recovered/Not Resolved]
  - Rash [Not Recovered/Not Resolved]
  - Chills [Not Recovered/Not Resolved]
  - Rales [Not Recovered/Not Resolved]
  - Pyrexia [Recovered/Resolved]
  - Malaise [Not Recovered/Not Resolved]
  - Respiratory tract infection [Recovered/Resolved]

NARRATIVE: CASE EVENT DATE: 20150825
